FAERS Safety Report 16745681 (Version 2)
Quarter: 2020Q3

REPORT INFORMATION
  Report Type: Spontaneous
  Country: GB (occurrence: GB)
  Receive Date: 20190827
  Receipt Date: 20200910
  Transmission Date: 20201102
  Serious: Yes (Other)
  Sender: FDA-Public Use
  Company Number: GB-BAYER-2019-156287

PATIENT
  Age: 73 Year
  Sex: Male
  Weight: 97 kg

DRUGS (18)
  1. CANDESARTAN. [Concomitant]
     Active Substance: CANDESARTAN
     Indication: HYPERTENSION
     Dosage: 1 DF, UNK
     Dates: start: 20180914
  2. OMEPRAZOLE. [Concomitant]
     Active Substance: OMEPRAZOLE
     Dosage: 4 DF, UNK
     Dates: start: 20190327
  3. GAVISCON ADVANCE [POTASSIUM BICARBONATE;SODIUM ALGINATE] [Concomitant]
     Dosage: UNK
  4. OTOMIZE [Concomitant]
     Active Substance: DEXAMETHASONE\NEOMYCIN SULFATE
     Dosage: 3 DF, UNK
     Dates: start: 20190503, end: 20190510
  5. SPASMONAL [ALVERINE CITRATE] [Concomitant]
     Dosage: 3 DF, UNK
     Dates: start: 20190501, end: 20190531
  6. FELODIPINE. [Concomitant]
     Active Substance: FELODIPINE
     Dosage: 1 DF, UNK
     Dates: start: 20190321
  7. LORATADINE. [Suspect]
     Active Substance: LORATADINE
     Dosage: 10 MG, UNK
  8. ACETYLSALICYLIC ACID [Concomitant]
     Active Substance: ASPIRIN
     Dosage: 1 DF, UNK
     Dates: start: 20180914
  9. SODIUM CROMOGLICATE [Concomitant]
     Active Substance: CROMOLYN SODIUM
     Dosage: 4 GTT, UNK
     Dates: start: 20190503, end: 20190531
  10. LAXIDO [Concomitant]
     Active Substance: POLYETHYLENE GLYCOL 3350\POTASSIUM CHLORIDE\SODIUM BICARBONATE\SODIUM CHLORIDE
     Dosage: 3 DF, UNK
     Dates: start: 20180914
  11. SUKKARTO [Concomitant]
     Active Substance: METFORMIN HYDROCHLORIDE
     Indication: DIABETES MELLITUS
     Dosage: 4 DF, UNK
     Dates: start: 20180917
  12. E45 [Concomitant]
     Active Substance: LANOLIN\LIGHT MINERAL OIL\PARAFFIN
     Dosage: UNK
  13. SIMVASTATIN. [Concomitant]
     Active Substance: SIMVASTATIN
     Dosage: 1 DF, UNK
     Dates: start: 20180914
  14. ATENOLOL. [Concomitant]
     Active Substance: ATENOLOL
     Dosage: 1 DF, UNK
     Dates: start: 20190327
  15. ALVERINE CITRATE [Concomitant]
     Active Substance: ALVERINE CITRATE
     Dosage: 3 DF, UNK
     Dates: start: 20180914
  16. GLYCERYL TRINITRATE [Concomitant]
     Active Substance: NITROGLYCERIN
     Dosage: 1 DF, UNK
     Dates: start: 20180914, end: 20190624
  17. CINCHOCAINE [Concomitant]
     Active Substance: DIBUCAINE
     Dosage: UNK
  18. MEBEVERINE HYDROCHLORIDE [Concomitant]
     Active Substance: MEBEVERINE HYDROCHLORIDE
     Dosage: 3 DF, UNK
     Dates: start: 20190401, end: 20190504

REACTIONS (2)
  - Blood pressure decreased [Recovered/Resolved]
  - Presyncope [Recovered/Resolved]

NARRATIVE: CASE EVENT DATE: 20190627
